FAERS Safety Report 7129332-3 (Version None)
Quarter: 2010Q4

REPORT INFORMATION
  Report Type: 
  Country: None (occurrence: None)
  Receive Date: 20101130
  Receipt Date: 20101118
  Transmission Date: 20110411
  Serious: Yes (Hospitalization)
  Sender: FDA-Public Use
  Company Number: US-WATSON-2010-15092

PATIENT
  Sex: Female
  Weight: 70.295 kg

DRUGS (1)
  1. POTASSIUM CHLORIDE [Suspect]
     Indication: HYPOKALAEMIA
     Dosage: 10 CAPSULES DAILY
     Route: 048
     Dates: start: 20060101

REACTIONS (1)
  - DIVERTICULITIS [None]
